FAERS Safety Report 4315089-8 (Version None)
Quarter: 2004Q1

REPORT INFORMATION
  Report Type: 
  Country: None (occurrence: None)
  Receive Date: 20040310
  Receipt Date: 20040303
  Transmission Date: 20041129
  Serious: Yes (Other)
  Sender: FDA-Public Use
  Company Number: US-ROCHE-360713

PATIENT
  Age: 50 Year
  Sex: Female

DRUGS (2)
  1. PEGASYS [Suspect]
     Indication: DRUG USE FOR UNKNOWN INDICATION
     Route: 065
  2. COPEGUS [Suspect]
     Indication: DRUG USE FOR UNKNOWN INDICATION
     Route: 048

REACTIONS (11)
  - DYSPNOEA [None]
  - EPISTAXIS [None]
  - FATIGUE [None]
  - HAEMOGLOBIN ABNORMAL [None]
  - HAEMORRHOIDS [None]
  - HEPATIC PAIN [None]
  - NERVOUSNESS [None]
  - PARAESTHESIA [None]
  - PLATELET COUNT ABNORMAL [None]
  - VERTIGO [None]
  - WHITE BLOOD CELL DISORDER [None]
